FAERS Safety Report 5724535-4 (Version None)
Quarter: 2008Q2

REPORT INFORMATION
  Report Type: 
  Country: None (occurrence: None)
  Receive Date: 20080428
  Receipt Date: 20080418
  Transmission Date: 20081010
  Serious: Yes (Other)
  Sender: FDA-Public Use
  Company Number: VISP-PR-0804S-0217

PATIENT
  Sex: Female

DRUGS (1)
  1. VISIPAQUE [Suspect]
     Dosage: UNSPECIFIED AMOUNT INADVERTENTLY LEAKED ON ARM, SINGLE DOSE, TOP
     Route: 061
     Dates: start: 20080415, end: 20080415

REACTIONS (4)
  - COUGH [None]
  - DEVICE FAILURE [None]
  - DYSPNOEA [None]
  - PRURITUS [None]
